FAERS Safety Report 8186347-4 (Version None)
Quarter: 2012Q1

REPORT INFORMATION
  Report Type: 
  Country: None (occurrence: None)
  Receive Date: 20120301
  Receipt Date: 20120214
  Transmission Date: 20120608
  Serious: Yes (Death)
  Sender: FDA-Public Use
  Company Number: FK201200479

PATIENT
  Sex: Male

DRUGS (1)
  1. MITOXANTRONE [Suspect]
     Indication: RELAPSING-REMITTING MULTIPLE SCLEROSIS
     Dosage: 96 MG/M2

REACTIONS (1)
  - ACUTE MYELOID LEUKAEMIA [None]
